FAERS Safety Report 5753910-7 (Version None)
Quarter: 2008Q2

REPORT INFORMATION
  Report Type: 
  Country: None (occurrence: None)
  Receive Date: 20080530
  Receipt Date: 20080523
  Transmission Date: 20081010
  Serious: Yes (Life-Threatening, Hospitalization)
  Sender: FDA-Public Use
  Company Number: B0522481A

PATIENT
  Age: 89 Year
  Sex: Male

DRUGS (10)
  1. AMOXICILLIN [Suspect]
     Indication: BRONCHITIS
     Route: 048
     Dates: start: 20080229, end: 20080310
  2. VENTOLIN [Suspect]
     Indication: BRONCHITIS
     Route: 055
     Dates: start: 20080229, end: 20080310
  3. CELESTONE [Suspect]
     Indication: BRONCHITIS
     Route: 048
     Dates: start: 20080229, end: 20080310
  4. BIOCALYPTOL [Suspect]
     Indication: BRONCHITIS
     Route: 048
     Dates: start: 20080229, end: 20080310
  5. DOLIPRANE [Concomitant]
     Indication: DRUG USE FOR UNKNOWN INDICATION
     Route: 065
  6. CASODEX [Concomitant]
     Route: 065
  7. VOLTAREN [Concomitant]
     Indication: DRUG USE FOR UNKNOWN INDICATION
     Route: 065
  8. TAHOR [Concomitant]
     Indication: DRUG USE FOR UNKNOWN INDICATION
     Route: 065
  9. ISKEDYL [Concomitant]
     Indication: DRUG USE FOR UNKNOWN INDICATION
     Route: 065
  10. CHONDROSULF [Concomitant]
     Indication: DRUG USE FOR UNKNOWN INDICATION
     Route: 065

REACTIONS (10)
  - INFECTION [None]
  - INFLAMMATION [None]
  - LEUKOCYTOSIS [None]
  - LUNG DISORDER [None]
  - PRURITUS [None]
  - PURPURA [None]
  - RASH MORBILLIFORM [None]
  - RASH PUSTULAR [None]
  - RIB FRACTURE [None]
  - SKIN LESION [None]
